FAERS Safety Report 10247525 (Version 1)
Quarter: 2014Q2

REPORT INFORMATION
  Report Type: Spontaneous
  Country: FR (occurrence: None)
  Receive Date: 20140617
  Receipt Date: 20140617
  Transmission Date: 20141212
  Serious: Yes (Hospitalization)
  Sender: FDA-Public Use
  Company Number: 7297188

PATIENT
  Age: 86 Year
  Sex: Female

DRUGS (4)
  1. LEVOTHYROX (LEVOTHYROXINE SODIUM) (LEVOTHYROXINE SODIUM) [Suspect]
     Indication: HYPOTHYROIDISM
     Route: 048
  2. DABIGATRAN (DABIGATRAN (DABIGATRAN) [Concomitant]
  3. SOTALOL (SOTALOL) SOTALOL) [Concomitant]
  4. LOSARTAN (LOSARTAN) (LOSARTAN) [Concomitant]

REACTIONS (6)
  - Tachycardia [None]
  - Cardiac failure [None]
  - Fall [None]
  - Dyspnoea [None]
  - Orthostatic hypotension [None]
  - Renal impairment [None]
